FAERS Safety Report 7729348-X (Version None)
Quarter: 2011Q3

REPORT INFORMATION
  Report Type: 
  Country: None (occurrence: None)
  Receive Date: 20110906
  Receipt Date: 20110822
  Transmission Date: 20111222
  Serious: Yes (Hospitalization)
  Sender: FDA-Public Use
  Company Number: GB-ASTELLAS-2011US003006

PATIENT
  Sex: Male
  Weight: 90 kg

DRUGS (13)
  1. ACETAMINOPHEN AND CODEINE PHOSPHATE [Concomitant]
     Indication: MUSCULOSKELETAL DISCOMFORT
  2. SIMVASTATIN [Concomitant]
     Indication: HYPERCHOLESTEROLAEMIA
     Dosage: UNK
     Route: 065
     Dates: start: 20100401
  3. AVEENO [Concomitant]
     Indication: CONTUSION
  4. SORAFENIB [Suspect]
     Indication: HEPATIC NEOPLASM MALIGNANT
     Dosage: 400 MG, BID
     Route: 048
     Dates: start: 20101026, end: 20110525
  5. ASPIRIN [Concomitant]
     Indication: THROMBOSIS PROPHYLAXIS
     Dosage: UNK
     Route: 065
     Dates: start: 20100101
  6. GASTROGRAFIN [Concomitant]
     Indication: PRODUCT USED FOR UNKNOWN INDICATION
     Dosage: UNK
     Route: 065
     Dates: start: 20101020
  7. ERLOTINIB HYDROCHLORIDE [Suspect]
     Indication: HEPATIC NEOPLASM MALIGNANT
     Dosage: 150 MG, UID/QD
     Route: 048
     Dates: start: 20101026, end: 20110525
  8. ACETAMINOPHEN AND CODEINE PHOSPHATE [Concomitant]
     Indication: METASTATIC PAIN
     Dosage: UNK
     Route: 065
     Dates: start: 20100701, end: 20110510
  9. IOPAMIDOL [Concomitant]
     Indication: PRODUCT USED FOR UNKNOWN INDICATION
     Dosage: UNK
     Route: 065
     Dates: start: 20101020
  10. AVEENO [Concomitant]
     Indication: RASH
     Dosage: UNK
     Route: 065
     Dates: start: 20110308
  11. MOXONIDINE [Concomitant]
     Indication: HYPERTENSION
     Dosage: UNK
     Route: 065
     Dates: start: 19990906
  12. RANITIDINE [Concomitant]
     Indication: GASTROOESOPHAGEAL REFLUX DISEASE
     Dosage: UNK
     Route: 065
     Dates: start: 20101012
  13. AMLODIPINE [Concomitant]
     Indication: PRODUCT USED FOR UNKNOWN INDICATION
     Dosage: UNK
     Route: 065
     Dates: end: 20110616

REACTIONS (8)
  - ASCITES [None]
  - HEPATIC FAILURE [None]
  - TESTICULAR SWELLING [None]
  - STAPHYLOCOCCAL INFECTION [None]
  - CLOSTRIDIAL INFECTION [None]
  - HAEMATEMESIS [None]
  - ABDOMINAL DISTENSION [None]
  - OEDEMA PERIPHERAL [None]
